FAERS Safety Report 11605315 (Version 3)
Quarter: 2016Q2

REPORT INFORMATION
  Report Type: Report from Study
  Country: BR (occurrence: BR)
  Receive Date: 20151007
  Receipt Date: 20160630
  Transmission Date: 20160815
  Serious: Yes (Hospitalization)
  Sender: FDA-Public Use
  Company Number: PHHY2015BR120106

PATIENT
  Sex: Female
  Weight: 58 kg

DRUGS (1)
  1. EXJADE [Suspect]
     Active Substance: DEFERASIROX
     Indication: SICKLE CELL ANAEMIA
     Dosage: 25 MG/KG, QD (3 DF OF 500 MG)
     Route: 048
     Dates: start: 201411

REACTIONS (6)
  - Gastrointestinal disorder [Unknown]
  - Bacterial infection [Unknown]
  - Pyrexia [Unknown]
  - Diarrhoea [Unknown]
  - Serum ferritin increased [Unknown]
  - Abdominal pain [Unknown]
